FAERS Safety Report 9750562 (Version 2)
Quarter: 2014Q1

REPORT INFORMATION
  Report Type: Spontaneous
  Country: US (occurrence: US)
  Receive Date: 20131212
  Receipt Date: 20140116
  Transmission Date: 20141002
  Serious: No
  Sender: FDA-Public Use
  Company Number: US-BIOGENIDEC-2013BI095907

PATIENT
  Sex: Female
  Weight: 95 kg

DRUGS (11)
  1. TECFIDERA [Suspect]
     Indication: PRODUCT USED FOR UNKNOWN INDICATION
     Route: 048
  2. LIPITOR [Concomitant]
  3. PRILOSEC [Concomitant]
  4. NORVASC [Concomitant]
  5. ESTROVEN [Concomitant]
  6. LEXAPRO [Concomitant]
  7. VICODIN TAB [Concomitant]
  8. SYNTHROID [Concomitant]
  9. VITAMIN B COMPLEX [Concomitant]
  10. VITAMIN B-12 [Concomitant]
  11. CALCIUM+D [Concomitant]

REACTIONS (2)
  - Joint swelling [Unknown]
  - Surgery [Unknown]
